FAERS Safety Report 10411726 (Version 3)
Quarter: 2014Q4

REPORT INFORMATION
  Report Type: Spontaneous
  Country: US (occurrence: US)
  Receive Date: 20140827
  Receipt Date: 20141022
  Transmission Date: 20150528
  Serious: Yes (Hospitalization, Other)
  Sender: FDA-Public Use
  Company Number: US-009507513-1408USA011076

PATIENT
  Sex: Female
  Weight: 113.38 kg

DRUGS (1)
  1. JANUVIA [Suspect]
     Active Substance: SITAGLIPTIN PHOSPHATE
     Indication: TYPE 2 DIABETES MELLITUS
     Dosage: UNSPECIFIED, QD
     Route: 048
     Dates: start: 2013

REACTIONS (15)
  - Osteoarthritis [Unknown]
  - Spinal osteoarthritis [Unknown]
  - Bladder instillation procedure [Recovered/Resolved]
  - Bladder neoplasm surgery [Unknown]
  - Genital atrophy [Unknown]
  - Surgery [Unknown]
  - Abdominal wall disorder [Unknown]
  - Bladder transitional cell carcinoma [Recovered/Resolved]
  - Hypothyroidism [Unknown]
  - Hyperlipidaemia [Unknown]
  - Diverticulum intestinal [Unknown]
  - Anaemia [Unknown]
  - Pulmonary calcification [Unknown]
  - Hypertension [Unknown]
  - Stress urinary incontinence [Unknown]

NARRATIVE: CASE EVENT DATE: 201302
